FAERS Safety Report 8386089-6 (Version None)
Quarter: 2012Q2

REPORT INFORMATION
  Report Type: 
  Country: None (occurrence: None)
  Receive Date: 20120525
  Receipt Date: 20120515
  Transmission Date: 20120825
  Serious: Yes (Other)
  Sender: FDA-Public Use
  Company Number: CA-JNJFOC-20120513363

PATIENT
  Sex: Male
  Weight: 70 kg

DRUGS (3)
  1. REMICADE [Suspect]
     Indication: COLITIS ULCERATIVE
     Route: 042
     Dates: start: 20080826
  2. IMURAN [Concomitant]
     Route: 065
  3. MESALAMINE [Concomitant]
     Route: 065

REACTIONS (1)
  - INTERVERTEBRAL DISC PROTRUSION [None]
